FAERS Safety Report 20877688 (Version 1)
Quarter: 2022Q2

REPORT INFORMATION
  Report Type: Spontaneous
  Country: US (occurrence: None)
  Receive Date: 20220526
  Receipt Date: 20220526
  Transmission Date: 20220720
  Serious: Yes (Hospitalization)
  Sender: FDA-Public Use
  Company Number: None

PATIENT
  Age: 41 Year
  Sex: Male
  Weight: 82 kg

DRUGS (1)
  1. ERENUMAB-AOOE [Suspect]
     Active Substance: ERENUMAB-AOOE
     Indication: Migraine
     Route: 058
     Dates: start: 20210520, end: 20210621

REACTIONS (3)
  - Constipation [None]
  - Diarrhoea [None]
  - Abdominal pain lower [None]

NARRATIVE: CASE EVENT DATE: 20210621
